FAERS Safety Report 8992770 (Version 1)
Quarter: 2013Q1

REPORT INFORMATION
  Report Type: Spontaneous
  Country: UA (occurrence: UA)
  Receive Date: 20130102
  Receipt Date: 20130102
  Transmission Date: 20140127
  Serious: Yes (Death, Other)
  Sender: FDA-Public Use
  Company Number: UA-ROCHE-1175544

PATIENT
  Age: 51 None
  Sex: Female

DRUGS (3)
  1. ALTEPLASE [Suspect]
     Indication: ISCHAEMIC STROKE
     Route: 042
  2. APROTININ [Concomitant]
  3. MAGNESIA [Concomitant]

REACTIONS (4)
  - Brain oedema [Fatal]
  - Cerebral haemorrhage [Fatal]
  - Haemorrhagic stroke [Fatal]
  - Coma [Unknown]
